FAERS Safety Report 23667929 (Version 1)
Quarter: 2024Q1

REPORT INFORMATION
  Report Type: Spontaneous
  Country: US (occurrence: None)
  Receive Date: 20240322
  Receipt Date: 20240322
  Transmission Date: 20240409
  Serious: No
  Sender: FDA-Public Use
  Company Number: None

PATIENT
  Sex: 0

DRUGS (1)
  1. .DELTA.8-TETRAHYDROCANNABINOL\HERBALS [Suspect]
     Active Substance: .DELTA.8-TETRAHYDROCANNABINOL\HERBALS
     Indication: Prophylaxis against dehydration
     Dates: start: 20240317, end: 20240317

REACTIONS (3)
  - Accidental exposure to product [None]
  - Substance use [None]
  - Product communication issue [None]

NARRATIVE: CASE EVENT DATE: 20240317
